FAERS Safety Report 5536534-6 (Version None)
Quarter: 2007Q4

REPORT INFORMATION
  Report Type: 
  Country: None (occurrence: None)
  Receive Date: 20071206
  Receipt Date: 20070926
  Transmission Date: 20080405
  Serious: Yes (Hospitalization)
  Sender: FDA-Public Use
  Company Number: US-AMGEN-STX245071

PATIENT
  Sex: Female

DRUGS (10)
  1. ENBREL [Suspect]
     Indication: RHEUMATOID ARTHRITIS
     Route: 065
     Dates: start: 20030101
  2. PRILOSEC [Concomitant]
     Route: 065
  3. PLAVIX [Concomitant]
     Route: 065
  4. COREG [Concomitant]
     Route: 065
  5. POTASSIUM CHLORIDE [Concomitant]
     Route: 065
  6. PREDNISONE TAB [Concomitant]
     Route: 065
  7. METHOTREXATE [Concomitant]
     Route: 065
  8. ULTRAM [Concomitant]
     Route: 065
  9. ASPIRIN [Concomitant]
     Route: 065
  10. VYTORIN [Concomitant]
     Route: 065

REACTIONS (1)
  - PULMONARY EMBOLISM [None]
